FAERS Safety Report 25370038 (Version 2)
Quarter: 2025Q2

REPORT INFORMATION
  Report Type: Spontaneous
  Country: US (occurrence: US)
  Receive Date: 20250528
  Receipt Date: 20250529
  Transmission Date: 20250716
  Serious: No
  Sender: PFIZER
  Company Number: US-PFIZER INC-PV202500063550

PATIENT
  Age: 54 Year
  Sex: Female

DRUGS (1)
  1. TUKYSA [Suspect]
     Active Substance: TUCATINIB
     Dosage: UNK, 2X/DAY (2 PILLS 2X A DAY)
     Dates: start: 20250523

REACTIONS (2)
  - Muscle spasms [Unknown]
  - Hand deformity [Unknown]
